FAERS Safety Report 17364892 (Version 2)
Quarter: 2020Q2

REPORT INFORMATION
  Report Type: Spontaneous
  Country: DK (occurrence: DK)
  Receive Date: 20200204
  Receipt Date: 20200512
  Transmission Date: 20200713
  Serious: Yes (Other)
  Sender: FDA-Public Use
  Company Number: DK-AUROBINDO-AUR-APL-2020-004293

PATIENT
  Age: 33 Year
  Sex: Male

DRUGS (11)
  1. ZELDOX [Suspect]
     Active Substance: ZIPRASIDONE
     Indication: MENTAL DISORDER
     Dosage: 20 MILLIGRAM
     Route: 048
     Dates: start: 2010, end: 2013
  2. ABILIFY [Concomitant]
     Active Substance: ARIPIPRAZOLE
     Dosage: UNK
     Route: 065
     Dates: start: 2014
  3. ESCITALOPRAM [Concomitant]
     Active Substance: ESCITALOPRAM OXALATE
     Indication: PRODUCT USED FOR UNKNOWN INDICATION
     Dosage: UNK
     Route: 065
  4. OLANZAPINE TABLET [Suspect]
     Active Substance: OLANZAPINE
     Indication: PRODUCT USED FOR UNKNOWN INDICATION
     Dosage: UNK
     Route: 065
  5. CLOZAPIN HEXAL [Suspect]
     Active Substance: CLOZAPINE
     Indication: PSYCHOTIC DISORDER
     Dosage: DOSIS: TIDLIGERE 350 MG, 15FEB-14SEP2017 250 MG X 1 DGL, FRA 14SEP2017 200 MG X 1 DGL
     Route: 048
  6. SEROQUEL [Suspect]
     Active Substance: QUETIAPINE FUMARATE
     Indication: MENTAL DISORDER
     Dosage: 500 MILLIGRAM
     Route: 048
     Dates: start: 20050310
  7. DELEPSINE [Concomitant]
     Active Substance: VALPROATE SODIUM
     Dosage: DOSIS: 2,5 ML MORGEN OG 4 ML AFTEN.STYRKE: 200 MG/ML.
     Route: 048
     Dates: start: 20150717
  8. ABILIFY [Concomitant]
     Active Substance: ARIPIPRAZOLE
     Indication: PRODUCT USED FOR UNKNOWN INDICATION
     Dosage: UNK
     Route: 065
  9. ZYPREXA [Suspect]
     Active Substance: OLANZAPINE
     Indication: PRODUCT USED FOR UNKNOWN INDICATION
     Dosage: UNK
     Route: 065
  10. RISPERDAL [Suspect]
     Active Substance: RISPERIDONE
     Indication: PRODUCT USED FOR UNKNOWN INDICATION
     Dosage: UNK
     Route: 065
     Dates: end: 2013
  11. DELEPSINE [Concomitant]
     Active Substance: VALPROATE SODIUM
     Indication: MANIA
     Dosage: DOSIS: 2,5 ML MORGEN OG 4 ML AFTEN.STYRKE: 200 MG/ML.
     Route: 048
     Dates: start: 20150202, end: 20170614

REACTIONS (6)
  - Erectile dysfunction [Not Recovered/Not Resolved]
  - Feminisation acquired [Not Recovered/Not Resolved]
  - Homosexuality [Not Recovered/Not Resolved]
  - Gender dysphoria [Unknown]
  - Sperm concentration decreased [Not Recovered/Not Resolved]
  - Semen volume decreased [Unknown]
